FAERS Safety Report 4351587-9 (Version None)
Quarter: 2004Q2

REPORT INFORMATION
  Report Type: 
  Country: None (occurrence: None)
  Receive Date: 20040429
  Receipt Date: 20040401
  Transmission Date: 20050107
  Serious: No
  Sender: FDA-Public Use
  Company Number: 2004-114550-NL

PATIENT
  Age: 22 Year
  Weight: 54.5 kg

DRUGS (1)
  1. NUVARING [Suspect]
     Indication: CONTRACEPTION
     Dosage: DF DAILY
     Dates: start: 20030701

REACTIONS (1)
  - METRORRHAGIA [None]
